FAERS Safety Report 7443414-8 (Version None)
Quarter: 2011Q2

REPORT INFORMATION
  Report Type: 
  Country: None (occurrence: None)
  Receive Date: 20110428
  Receipt Date: 20110426
  Transmission Date: 20111010
  Serious: Yes (Other)
  Sender: FDA-Public Use
  Company Number: IE-PFIZER INC-2011089655

PATIENT
  Age: 43 Year
  Sex: Female

DRUGS (3)
  1. ETHANOL [Interacting]
     Dosage: UNK
  2. LYRICA [Interacting]
     Indication: ANXIETY
  3. LYRICA [Suspect]
     Indication: DEPRESSION
     Dosage: 3 G, UNK

REACTIONS (3)
  - OVERDOSE [None]
  - DRUG INTERACTION [None]
  - LOSS OF CONSCIOUSNESS [None]
